FAERS Safety Report 8444067-2 (Version None)
Quarter: 2012Q2

REPORT INFORMATION
  Report Type: 
  Country: None (occurrence: None)
  Receive Date: 20120618
  Receipt Date: 20120613
  Transmission Date: 20120825
  Serious: Yes (Other)
  Sender: FDA-Public Use
  Company Number: PHHY2010JP87769

PATIENT
  Sex: Male

DRUGS (4)
  1. TASIGNA [Suspect]
     Indication: CHRONIC MYELOID LEUKAEMIA
     Dosage: 800MG
     Route: 048
     Dates: start: 20090902, end: 20090908
  2. TASIGNA [Suspect]
     Dosage: 800MG
     Route: 048
     Dates: start: 20091219, end: 20100916
  3. CARVEDILOL [Concomitant]
     Indication: HYPERTENSION
     Dosage: 20 MG, UNK
     Dates: start: 20090310
  4. TASIGNA [Suspect]
     Dosage: 600MG
     Route: 048
     Dates: start: 20091001, end: 20091218

REACTIONS (2)
  - BLOOD BILIRUBIN INCREASED [None]
  - GAMMA-GLUTAMYLTRANSFERASE INCREASED [None]
